FAERS Safety Report 13412944 (Version 8)
Quarter: 2017Q4

REPORT INFORMATION
  Report Type: Report from Study
  Country: CZ (occurrence: CZ)
  Receive Date: 20170407
  Receipt Date: 20171018
  Transmission Date: 20180320
  Serious: Yes (Hospitalization)
  Sender: FDA-Public Use
  Company Number: CZ-ROCHE-1896760

PATIENT
  Age: 25 Year
  Sex: Female
  Weight: 62 kg

DRUGS (69)
  1. OCRELIZUMAB. [Suspect]
     Active Substance: OCRELIZUMAB
     Dosage: (520ML; 1107161, INTERRUPTED AS PATIENT WAS ON TOILET)?SHE RECEIVED THE FURTHER DOSES OF OPEN-LABEL
     Route: 042
     Dates: start: 20140509
  2. PARAMAX [Concomitant]
     Active Substance: ACETAMINOPHEN
     Indication: PREMEDICATION
     Route: 065
     Dates: start: 20120105
  3. CHOLAGOL (CZECH REPUBLIC) [Concomitant]
     Route: 065
     Dates: start: 201208, end: 20121017
  4. HELICID [Concomitant]
     Active Substance: OMEPRAZOLE
     Route: 065
     Dates: start: 20170312, end: 20170320
  5. TRAMAL [Concomitant]
     Active Substance: TRAMADOL
     Route: 065
     Dates: start: 201203, end: 20121017
  6. KALIUM CHLORATUM [Concomitant]
     Active Substance: POTASSIUM CHLORIDE
     Route: 065
     Dates: start: 20170214, end: 20170222
  7. PREDNISON [Concomitant]
     Active Substance: PREDNISONE
     Route: 065
     Dates: start: 20170719, end: 20170721
  8. OCRELIZUMAB. [Suspect]
     Active Substance: OCRELIZUMAB
     Dosage: (WEEK 24, 500ML, KIT NUMBER: 605995)?SHE RECEIVED THE FURTHER DOSES OF OCRELIZUMAB: ON 06/DEC/2012 (
     Route: 042
     Dates: start: 20120621
  9. PLACEBO [Suspect]
     Active Substance: UNSPECIFIED INGREDIENT
     Indication: RELAPSING-REMITTING MULTIPLE SCLEROSIS
     Dosage: WITH PLACEBO INFUSIONS MATCHING OCRELIZUMAB INFUSIONS EVERY 24 WEEKS
     Route: 058
     Dates: start: 20120105
  10. PARALEN (CZECH REPUBLIC) [Concomitant]
     Indication: PREMEDICATION
     Dosage: SHE RECEIVED THE FOLLOWING DOSES OF PARACETAMOL: 20/JAN/2012 (500MG), 29/SEP/2015 (1000MG), 10/MAR/2
     Route: 065
     Dates: start: 20120120
  11. DESLORATADIN [Concomitant]
     Active Substance: DESLORATADINE
     Indication: PREMEDICATION
     Route: 065
     Dates: start: 20150427
  12. ZOLOFT [Concomitant]
     Active Substance: SERTRALINE HYDROCHLORIDE
     Route: 065
     Dates: start: 201403, end: 20160510
  13. MEDROL [Concomitant]
     Active Substance: METHYLPREDNISOLONE
     Route: 065
     Dates: start: 20110719, end: 20110730
  14. PREDNISON [Concomitant]
     Active Substance: PREDNISONE
     Route: 065
     Dates: start: 20170722, end: 20170724
  15. NOVALGIN (CZECH REPUBLIC) [Concomitant]
     Indication: PAIN
     Route: 042
     Dates: start: 20170314, end: 20170316
  16. KALNORMIN [Concomitant]
     Active Substance: POTASSIUM CHLORIDE
     Route: 065
     Dates: start: 20170312, end: 20170320
  17. PERFALGAN [Concomitant]
     Active Substance: ACETAMINOPHEN
     Route: 065
     Dates: start: 20170717, end: 20170723
  18. OCRELIZUMAB. [Suspect]
     Active Substance: OCRELIZUMAB
     Indication: RELAPSING-REMITTING MULTIPLE SCLEROSIS
     Dosage: (WEEK 1, 200ML, KIT NUMBER: 601916)?ON DAY 1 AND DAY 15 FOR THE FIRST DOSE AND AS A SINGLE INFUSION
     Route: 042
     Dates: start: 20120105
  19. HELICID [Concomitant]
     Active Substance: OMEPRAZOLE
     Route: 065
     Dates: start: 20170716, end: 20170802
  20. OFLOXIN [Concomitant]
     Route: 065
     Dates: start: 20160115, end: 20160124
  21. CIPLOX [Concomitant]
     Active Substance: CIPROFLOXACIN HYDROCHLORIDE
     Route: 065
     Dates: start: 20160325, end: 20160329
  22. CIPLOX [Concomitant]
     Active Substance: CIPROFLOXACIN HYDROCHLORIDE
     Route: 065
     Dates: start: 20170707, end: 20170715
  23. PREDNISON [Concomitant]
     Active Substance: PREDNISONE
     Route: 065
     Dates: start: 20170315, end: 20170317
  24. PREDNISON [Concomitant]
     Active Substance: PREDNISONE
     Route: 065
     Dates: start: 20170313, end: 20170314
  25. PROPOFOL. [Concomitant]
     Active Substance: PROPOFOL
     Route: 065
     Dates: start: 20170313, end: 20170313
  26. IGAMPLIA [Concomitant]
     Route: 065
     Dates: start: 20170411
  27. AMOKSIKLAV [Concomitant]
     Active Substance: AMOXICILLIN\CLAVULANATE POTASSIUM
     Route: 065
     Dates: start: 20170616, end: 20170629
  28. MANITOL [Concomitant]
     Active Substance: MANNITOL
     Route: 065
     Dates: start: 20170717, end: 20170717
  29. OCRELIZUMAB. [Suspect]
     Active Substance: OCRELIZUMAB
     Indication: RELAPSING-REMITTING MULTIPLE SCLEROSIS
     Dosage: (260ML; 1107161, INTERRUPTED AS PATIENT WAS ON TOILET)?ON DAY 1 AND DAY 15 FOR THE FIRST DOSE AND AS
     Route: 042
     Dates: start: 20131121
  30. OCRELIZUMAB. [Suspect]
     Active Substance: OCRELIZUMAB
     Dosage: (260ML; 1107161)
     Route: 042
     Dates: start: 20131205
  31. KLACID [Concomitant]
     Active Substance: CLARITHROMYCIN
     Route: 065
     Dates: start: 20150405, end: 20150409
  32. PREDNISON [Concomitant]
     Active Substance: PREDNISONE
     Route: 065
     Dates: start: 20170214, end: 20170216
  33. PREDNISON [Concomitant]
     Active Substance: PREDNISONE
     Route: 065
     Dates: start: 20110416, end: 20110418
  34. PREDNISON [Concomitant]
     Active Substance: PREDNISONE
     Route: 065
     Dates: start: 20170318, end: 20170320
  35. PREDNISON [Concomitant]
     Active Substance: PREDNISONE
     Route: 065
     Dates: start: 20170716, end: 20170718
  36. CLEXANE [Concomitant]
     Active Substance: ENOXAPARIN SODIUM
     Route: 065
     Dates: start: 20170215, end: 20170216
  37. DORMICUM (UNSPEC) [Concomitant]
     Route: 065
     Dates: start: 20170215, end: 20170215
  38. SOLU-MEDROL [Concomitant]
     Active Substance: METHYLPREDNISOLONE SODIUM SUCCINATE
     Route: 065
     Dates: start: 20110413, end: 20110415
  39. SOLU-MEDROL [Concomitant]
     Active Substance: METHYLPREDNISOLONE SODIUM SUCCINATE
     Route: 065
     Dates: start: 20110713, end: 20110718
  40. CIPLOX [Concomitant]
     Active Substance: CIPROFLOXACIN HYDROCHLORIDE
     Route: 048
     Dates: start: 20170315
  41. PREDNISON [Concomitant]
     Active Substance: PREDNISONE
     Route: 065
     Dates: start: 20170217, end: 20170219
  42. PREDNISON [Concomitant]
     Active Substance: PREDNISONE
     Route: 065
     Dates: start: 20170731, end: 20170802
  43. CLEXANE [Concomitant]
     Active Substance: ENOXAPARIN SODIUM
     Route: 065
     Dates: start: 20170314, end: 20170323
  44. DOLSIN [Concomitant]
     Indication: PAIN
     Route: 030
     Dates: start: 20170313, end: 20170314
  45. DEXAMED (CZECH REPUBLIC) [Concomitant]
     Route: 065
     Dates: start: 20170717, end: 20170717
  46. ZODAC [Concomitant]
     Active Substance: CETIRIZINE HYDROCHLORIDE
     Indication: PREMEDICATION
     Dosage: SHE RECEIVED THE FOLLOWING DOSES OF CETIRIZINE HYDROCHLORIDE: 29/SEP/2015, 10/MAR/2016, 25/AUG/2016
     Route: 065
     Dates: start: 20150929
  47. HELICID [Concomitant]
     Active Substance: OMEPRAZOLE
     Dosage: STOP DATE ON 22/FEB/2017
     Route: 065
     Dates: start: 20170214, end: 20170222
  48. REBIF [Concomitant]
     Active Substance: INTERFERON BETA-1A
     Route: 065
     Dates: start: 20110915, end: 20111121
  49. LYRICA [Concomitant]
     Active Substance: PREGABALIN
     Route: 065
     Dates: start: 20120621, end: 20121017
  50. PREDNISON [Concomitant]
     Active Substance: PREDNISONE
     Route: 065
     Dates: start: 20170220, end: 20170222
  51. CIPROFLOXACIN. [Concomitant]
     Active Substance: CIPROFLOXACIN
     Route: 065
     Dates: start: 20170716, end: 20170719
  52. PLACEBO [Suspect]
     Active Substance: UNSPECIFIED INGREDIENT
     Dosage: MOST RECENT DOE PRIOR TO SAE: 20/NOV/2013
     Route: 058
     Dates: start: 20131108
  53. METHYLPREDNISOLONE. [Concomitant]
     Active Substance: METHYLPREDNISOLONE
     Indication: PREMEDICATION
     Dosage: SHE RECEIVED THE FOLLOWING DOSES OF METHYLPREDNISOLONE: 05/JAN/2012, 20/JAN/2012, 21/JUN/2012, 06/DE
     Route: 065
     Dates: start: 20120105
  54. DITHIADEN [Concomitant]
     Active Substance: BISULEPIN
     Indication: PREMEDICATION
     Dosage: SHE RECEIVED THE FOLLOWING DOSES OF BISULEPIN HYDROCHLORIDE: 21/JUN/2012, 06/DEC/2012, 23/MAY/2013,
     Route: 065
     Dates: start: 20120621
  55. HELICID [Concomitant]
     Active Substance: OMEPRAZOLE
     Route: 065
     Dates: start: 201208, end: 20121017
  56. PREDNISON [Concomitant]
     Active Substance: PREDNISONE
     Route: 065
     Dates: start: 20170725, end: 20170727
  57. PREDNISON [Concomitant]
     Active Substance: PREDNISONE
     Route: 065
     Dates: start: 20170728, end: 20170730
  58. CLEXANE [Concomitant]
     Active Substance: ENOXAPARIN SODIUM
     Route: 065
     Dates: start: 20170716, end: 20170726
  59. YASMINELLE [Concomitant]
     Active Substance: DROSPIRENONE
     Route: 065
     Dates: start: 20110510, end: 20120601
  60. PROPOFOL. [Concomitant]
     Active Substance: PROPOFOL
     Route: 065
     Dates: start: 20170717, end: 20170717
  61. ENTEROL (CZECH REPUBLIC) [Concomitant]
  62. BISEPTOL [Concomitant]
     Active Substance: SULFAMETHOXAZOLE\TRIMETHOPRIM
     Route: 065
     Dates: start: 20170720, end: 2017
  63. ACIDUM FOLICUM [Concomitant]
     Active Substance: FOLIC ACID
     Route: 065
     Dates: start: 20170726
  64. DIAZEPAM. [Concomitant]
     Active Substance: DIAZEPAM
     Route: 065
     Dates: start: 20150926, end: 20150926
  65. VIGANTOL [Concomitant]
     Active Substance: CHOLECALCIFEROL
     Route: 065
     Dates: start: 20160812
  66. APAURIN [Concomitant]
     Active Substance: DIAZEPAM
     Route: 065
     Dates: start: 20160816, end: 20160816
  67. PREDNISON [Concomitant]
     Active Substance: PREDNISONE
     Route: 065
     Dates: start: 20170312, end: 20170314
  68. KALNORMIN [Concomitant]
     Active Substance: POTASSIUM CHLORIDE
     Route: 065
     Dates: start: 20170716, end: 20170802
  69. OCRELIZUMAB. [Suspect]
     Active Substance: OCRELIZUMAB
     Dosage: (WEEK 2, 200ML, KIT NUMBER: 601473)
     Route: 042
     Dates: start: 20120120

REACTIONS (1)
  - Mastoiditis [Not Recovered/Not Resolved]

NARRATIVE: CASE EVENT DATE: 20161207
